FAERS Safety Report 17656020 (Version 1)
Quarter: 2020Q2

REPORT INFORMATION
  Report Type: Spontaneous
  Country: US (occurrence: US)
  Receive Date: 20200410
  Receipt Date: 20200410
  Transmission Date: 20200713
  Serious: No
  Sender: FDA-Public Use
  Company Number: US-RECORDATI RARE DISEASES-2082629

PATIENT
  Age: 2 Day
  Sex: Female

DRUGS (1)
  1. CARBAGLU [Suspect]
     Active Substance: CARGLUMIC ACID
     Indication: HYPERGLYCINAEMIA
     Dates: start: 202001

REACTIONS (3)
  - Flatulence [Unknown]
  - Constipation [Unknown]
  - Off label use [Unknown]

NARRATIVE: CASE EVENT DATE: 202001
